FAERS Safety Report 26100419 (Version 1)
Quarter: 2025Q4

REPORT INFORMATION
  Report Type: Spontaneous
  Country: CA (occurrence: CA)
  Receive Date: 20251128
  Receipt Date: 20251128
  Transmission Date: 20260117
  Serious: Yes (Other)
  Sender: TEVA
  Company Number: CA-TEVA-VS-3395574

PATIENT
  Age: 7 Year
  Sex: Female

DRUGS (1)
  1. LORAZEPAM [Suspect]
     Active Substance: LORAZEPAM
     Indication: Catatonia
     Dosage: TIME INTERVAL: 0.33333333 DAYS: DOSE FORM: NOT SPECIFIED
     Route: 048

REACTIONS (3)
  - Self-destructive behaviour [Unknown]
  - Behaviour disorder [Unknown]
  - Tearfulness [Unknown]
